FAERS Safety Report 11318435 (Version 1)
Quarter: 2015Q3

REPORT INFORMATION
  Report Type: Spontaneous
  Country: BR (occurrence: BR)
  Receive Date: 20150728
  Receipt Date: 20150728
  Transmission Date: 20151125
  Serious: Yes (Other)
  Sender: FDA-Public Use
  Company Number: BR-AMGEN-BRASP2015074059

PATIENT
  Age: 70 Year
  Sex: Female
  Weight: 58 kg

DRUGS (3)
  1. ARA 2 [Concomitant]
     Indication: HYPERTENSION
     Dosage: UNK
  2. ENBREL [Suspect]
     Active Substance: ETANERCEPT
     Indication: RHEUMATOID ARTHRITIS
     Dosage: 50 MG, 1X/WEEK
     Route: 058
     Dates: start: 201309
  3. LOSARTAN. [Concomitant]
     Active Substance: LOSARTAN
     Indication: HYPERTENSION
     Dosage: UNK

REACTIONS (3)
  - Abdominal hernia [Unknown]
  - Gallbladder disorder [Unknown]
  - Reflux gastritis [Unknown]
